FAERS Safety Report 9163977 (Version 1)
Quarter: 2013Q1

REPORT INFORMATION
  Report Type: Spontaneous
  Country: KR (occurrence: KR)
  Receive Date: 20130314
  Receipt Date: 20130314
  Transmission Date: 20140127
  Serious: Yes (Hospitalization)
  Sender: FDA-Public Use
  Company Number: PHHY2013KR023625

PATIENT
  Age: 22 Year
  Sex: Female
  Weight: 49 kg

DRUGS (4)
  1. TACROLIMUS [Suspect]
     Indication: IMMUNOSUPPRESSION
     Dosage: 11 MG PER DAY (0.19 MG/KG/D)
  2. TACROLIMUS [Suspect]
     Dosage: 4 MG, BID
  3. MYCOPHENOLATE MOFETIL [Concomitant]
  4. CORTICOSTEROIDS [Concomitant]

REACTIONS (12)
  - Diabetic ketoacidosis [Unknown]
  - Decreased appetite [Unknown]
  - Polydipsia [Unknown]
  - Abdominal pain [Unknown]
  - Tongue disorder [Unknown]
  - Abdominal tenderness [Unknown]
  - Glycosuria [Recovered/Resolved]
  - Ketonuria [Recovered/Resolved]
  - Febrile neutropenia [Recovered/Resolved]
  - Pancreatitis acute [Unknown]
  - Immunosuppressant drug level increased [Unknown]
  - Hyperglycaemia [Unknown]
